FAERS Safety Report 13407970 (Version 2)
Quarter: 2018Q2

REPORT INFORMATION
  Report Type: Other
  Country: CA (occurrence: CA)
  Receive Date: 20170406
  Receipt Date: 20180528
  Transmission Date: 20180711
  Serious: Yes (Hospitalization, Other)
  Sender: FDA-Public Use
  Company Number: CA-APOTEX-2017AP009240

PATIENT
  Age: 70 Year
  Sex: Female

DRUGS (4)
  1. APO-MOMETASONE [Suspect]
     Active Substance: MOMETASONE FUROATE
     Indication: ASTHMA
     Dosage: UNK
     Route: 065
  2. MONTELUKAST [Suspect]
     Active Substance: MONTELUKAST SODIUM
     Indication: ASTHMA
     Route: 065
  3. MOMETASONE FUROATE. [Concomitant]
     Active Substance: MOMETASONE FUROATE
     Indication: PRODUCT USED FOR UNKNOWN INDICATION
     Dosage: UNK
     Route: 065
  4. SINGULAIR [Suspect]
     Active Substance: MONTELUKAST SODIUM
     Indication: ASTHMA
     Dosage: UNK
     Route: 048

REACTIONS (2)
  - Eosinophilic granulomatosis with polyangiitis [Unknown]
  - Granulomatosis with polyangiitis [Recovering/Resolving]
